APPROVED DRUG PRODUCT: HYDROCORTISONE ACETATE
Active Ingredient: HYDROCORTISONE ACETATE
Strength: 100%
Dosage Form/Route: POWDER;FOR RX COMPOUNDING
Application: A085981 | Product #001
Applicant: X GEN PHARMACEUTICALS INC
Approved: Approved Prior to Jan 1, 1982 | RLD: No | RS: No | Type: DISCN